FAERS Safety Report 25717605 (Version 1)
Quarter: 2025Q3

REPORT INFORMATION
  Report Type: Spontaneous
  Country: US (occurrence: US)
  Receive Date: 20250822
  Receipt Date: 20250822
  Transmission Date: 20251020
  Serious: Yes (Other)
  Sender: PFIZER
  Company Number: US-PFIZER INC-202500037134

PATIENT
  Age: 84 Year
  Sex: Female
  Weight: 69.943 kg

DRUGS (5)
  1. IBRANCE [Suspect]
     Active Substance: PALBOCICLIB
     Indication: Breast cancer female
     Dosage: 100 MG, DAILY
     Route: 048
  2. IBRANCE [Suspect]
     Active Substance: PALBOCICLIB
     Route: 048
  3. ANASTROZOLE [Concomitant]
     Active Substance: ANASTROZOLE
     Indication: Breast cancer stage IV
  4. ANASTROZOLE [Concomitant]
     Active Substance: ANASTROZOLE
     Dosage: 1 MG QDAY
     Route: 048
  5. ARIMIDEX [Concomitant]
     Active Substance: ANASTROZOLE

REACTIONS (3)
  - Deep vein thrombosis [Unknown]
  - Gastrointestinal haemorrhage [Unknown]
  - Haemoglobin decreased [Unknown]
